FAERS Safety Report 19566430 (Version 1)
Quarter: 2021Q3

REPORT INFORMATION
  Report Type: Spontaneous
  Country: GR (occurrence: GR)
  Receive Date: 20210714
  Receipt Date: 20210714
  Transmission Date: 20211014
  Serious: Yes (Other)
  Sender: FDA-Public Use
  Company Number: GR-GILEAD-2021-0540381

PATIENT
  Age: 69 Year
  Sex: Male

DRUGS (9)
  1. INFEFLOX [Suspect]
     Active Substance: CEFTRIAXONE SODIUM
     Indication: COVID-19 PNEUMONIA
     Dosage: 2 G, QD, LAST ADMINISTRATION 25?APR?2021
     Route: 042
     Dates: start: 20210419
  2. SALOSPIR [Concomitant]
     Active Substance: ASPIRIN
     Dosage: UNK, 100 MG X1
     Route: 048
     Dates: start: 20210420
  3. LORDIN [LORATADINE] [Concomitant]
     Dosage: 40 MG, QD, LAST ADMINISTERED 27?APR?2021
     Route: 042
     Dates: start: 20210419
  4. CLEXANE [Concomitant]
     Active Substance: ENOXAPARIN SODIUM
     Dosage: 1 X 1, LAST ADMINISTERED 27?APR?2021
     Route: 058
     Dates: start: 20210419
  5. VEKLURY [Suspect]
     Active Substance: REMDESIVIR
     Indication: PRODUCT USED FOR UNKNOWN INDICATION
     Dosage: 200 X 1 X 1 DAY100 X 1 X 4 DAYS, LAST DOSE ADMINISTERED 23?APR?2021
     Route: 042
     Dates: start: 20210419
  6. ULTRA LEVURE [Suspect]
     Active Substance: SACCHAROMYCES CEREVISIAE
     Indication: PRODUCT USED FOR UNKNOWN INDICATION
     Dosage: 100 MG, TID, LAST ADMINISTERED 25?APR?2021
     Route: 048
     Dates: start: 20210419
  7. OLMETEC PLUS [Concomitant]
     Active Substance: HYDROCHLOROTHIAZIDE\OLMESARTAN MEDOXOMIL
     Dosage: 1 DOSAGE FORM, LAST ADMINISTRATION 27?APR?2021
     Route: 048
     Dates: start: 20210419
  8. ZITHROMAX [Suspect]
     Active Substance: AZITHROMYCIN DIHYDRATE
     Indication: PRODUCT USED FOR UNKNOWN INDICATION
     Dosage: 500 MG, QD, LAST ADMINISTRATION 23?APR?2021
     Route: 048
     Dates: start: 20210419
  9. DEXATON [DEXAMETHASONE SODIUM PHOSPHATE;NEOMYCIN SULFATE] [Concomitant]
     Dosage: UNK, LAST ADMINISTRATION 27?APR?2021
     Route: 042
     Dates: start: 20210419

REACTIONS (1)
  - Urticaria [Recovering/Resolving]

NARRATIVE: CASE EVENT DATE: 20210425
